FAERS Safety Report 10178297 (Version 1)
Quarter: 2014Q2

REPORT INFORMATION
  Report Type: Spontaneous
  Country: US (occurrence: None)
  Receive Date: 20140516
  Receipt Date: 20140516
  Transmission Date: 20141212
  Serious: Yes (Other)
  Sender: FDA-Public Use
  Company Number: None

PATIENT
  Sex: 0

DRUGS (1)
  1. FOSTIMON [Suspect]

REACTIONS (3)
  - Treatment failure [None]
  - Self-medication [None]
  - Product counterfeit [None]
